FAERS Safety Report 23584633 (Version 1)
Quarter: 2024Q1

REPORT INFORMATION
  Report Type: Spontaneous
  Country: US (occurrence: US)
  Receive Date: 20240301
  Receipt Date: 20240301
  Transmission Date: 20240410
  Serious: No
  Sender: FDA-Public Use
  Company Number: US-APOTEX-2024AP002462

PATIENT
  Age: 6 Year

DRUGS (1)
  1. DEXAMETHASONE [Suspect]
     Active Substance: DEXAMETHASONE
     Indication: T-cell type acute leukaemia
     Dosage: UNK
     Route: 065

REACTIONS (3)
  - Obsessive-compulsive disorder [Recovering/Resolving]
  - Mood swings [Recovering/Resolving]
  - Condition aggravated [Recovering/Resolving]
